FAERS Safety Report 5062558-1 (Version None)
Quarter: 2006Q3

REPORT INFORMATION
  Report Type: 
  Country: None (occurrence: None)
  Receive Date: 20060721
  Receipt Date: 20060705
  Transmission Date: 20061208
  Serious: Yes (Death, Hospitalization)
  Sender: FDA-Public Use
  Company Number: 2006001333

PATIENT
  Age: 76 Year
  Sex: Male

DRUGS (10)
  1. ERLOTINIB HCL (TABLET) [Suspect]
     Indication: NON-SMALL CELL LUNG CANCER
     Dosage: 150 MG (QD), ORAL
     Route: 048
     Dates: start: 20060505, end: 20060527
  2. LASIX [Concomitant]
  3. LOSARTAN POSTASSIUM [Concomitant]
  4. DIGOXIN [Concomitant]
  5. FLECAINIDE ACETATE [Concomitant]
  6. BISOPROLOL FUMARATE [Concomitant]
  7. RANITIDINE [Concomitant]
  8. METHYLPREDNISOLONE [Concomitant]
  9. SIMVASTATIN [Concomitant]
  10. INDOBUFEN [Concomitant]

REACTIONS (2)
  - DYSPNOEA [None]
  - PYREXIA [None]
